FAERS Safety Report 24625575 (Version 2)
Quarter: 2024Q4

REPORT INFORMATION
  Report Type: Spontaneous
  Country: TR (occurrence: TR)
  Receive Date: 20241115
  Receipt Date: 20241126
  Transmission Date: 20250114
  Serious: Yes (Death, Other)
  Sender: BAYER HEALTHCARE PHARMACEUTICALS INC.
  Company Number: TR-BAYER-2024A163317

PATIENT
  Age: 70 Year

DRUGS (5)
  1. STIVARGA [Suspect]
     Active Substance: REGORAFENIB MONOHYDRATE
     Indication: Colon cancer
     Dosage: 40 MG, BID
  2. STIVARGA [Suspect]
     Active Substance: REGORAFENIB MONOHYDRATE
     Indication: Colon cancer
     Dosage: 40 MG, TID(3X40 MG)
  3. STIVARGA [Suspect]
     Active Substance: REGORAFENIB MONOHYDRATE
     Indication: Colon cancer
     Dosage: 120 MG, QD(1X120 MG)
  4. STIVARGA [Suspect]
     Active Substance: REGORAFENIB MONOHYDRATE
     Indication: Colon cancer
     Dosage: 160 MG, QOD(1X160 MG)
  5. STIVARGA [Suspect]
     Active Substance: REGORAFENIB MONOHYDRATE
     Indication: Colon cancer
     Dosage: 120 MG, QD(1X120 MG)
     Dates: start: 202305

REACTIONS (3)
  - Myocardial infarction [Fatal]
  - Palmar-plantar erythrodysaesthesia syndrome [None]
  - Product use issue [None]

NARRATIVE: CASE EVENT DATE: 20230901
